FAERS Safety Report 13084119 (Version 1)
Quarter: 2017Q1

REPORT INFORMATION
  Report Type: Spontaneous
  Country: GB (occurrence: GB)
  Receive Date: 20170104
  Receipt Date: 20170104
  Transmission Date: 20170428
  Serious: Yes (Other)
  Sender: FDA-Public Use
  Company Number: GB-TEVA-725066ACC

PATIENT
  Age: 65 Year
  Sex: Male

DRUGS (3)
  1. PROCYCLIDINE [Concomitant]
     Active Substance: PROCYCLIDINE
     Indication: RESTLESS LEGS SYNDROME
  2. HALOPERIDOL. [Suspect]
     Active Substance: HALOPERIDOL
     Indication: AGITATION
     Route: 065
  3. ZAPONEX [Suspect]
     Active Substance: CLOZAPINE
     Indication: SCHIZOPHRENIA
     Route: 048
     Dates: start: 20160914, end: 20161206

REACTIONS (17)
  - Sedation [Recovering/Resolving]
  - Dyspnoea [Recovered/Resolved]
  - Muscle tightness [Unknown]
  - Bruxism [Unknown]
  - Dysarthria [Unknown]
  - Confusional state [Recovering/Resolving]
  - Hypokinesia [Recovering/Resolving]
  - C-reactive protein increased [Unknown]
  - Aphasia [Recovering/Resolving]
  - Restless legs syndrome [Unknown]
  - Tachycardia [Recovering/Resolving]
  - Neutrophil count increased [Recovered/Resolved]
  - Balance disorder [Recovering/Resolving]
  - Chest discomfort [Recovered/Resolved]
  - Troponin I increased [Unknown]
  - White blood cell count increased [Recovered/Resolved]
  - Platelet count increased [Not Recovered/Not Resolved]

NARRATIVE: CASE EVENT DATE: 20161108
